FAERS Safety Report 5288748-0 (Version None)
Quarter: 2007Q2

REPORT INFORMATION
  Report Type: 
  Country: None (occurrence: None)
  Receive Date: 20070405
  Receipt Date: 20070403
  Transmission Date: 20071010
  Serious: Yes (Life-Threatening)
  Sender: FDA-Public Use
  Company Number: BR-BOEHRINGER INGELHEIM PHARMACEUTICALS, INC.-2007-DE-01947GD

PATIENT
  Age: 72 Year

DRUGS (2)
  1. DIPYRIDAMOLE [Suspect]
     Indication: STRESS ECHOCARDIOGRAM
     Route: 042
  2. DIGOXIN [Suspect]

REACTIONS (1)
  - ATRIOVENTRICULAR BLOCK COMPLETE [None]
